FAERS Safety Report 10047571 (Version 1)
Quarter: 2014Q1

REPORT INFORMATION
  Report Type: Spontaneous
  Country: US (occurrence: None)
  Receive Date: 20140328
  Receipt Date: 20140328
  Transmission Date: 20141002
  Serious: Yes (Hospitalization)
  Sender: FDA-Public Use
  Company Number: None

PATIENT
  Age: 69 Year
  Sex: Female
  Weight: 61.8 kg

DRUGS (5)
  1. EVISTA [Suspect]
     Indication: OSTEOPOROSIS
     Dosage: 1 PILL, QD, ORAL
     Route: 048
  2. MAGNESIUM CARBONATE [Concomitant]
  3. FLONASE [Concomitant]
  4. VITAMIN D [Concomitant]
  5. OMEGA-3 [Concomitant]

REACTIONS (3)
  - Nausea [None]
  - Pulmonary embolism [None]
  - Deep vein thrombosis [None]
